FAERS Safety Report 24156936 (Version 1)
Quarter: 2024Q3

REPORT INFORMATION
  Report Type: Report from Study
  Country: US (occurrence: None)
  Receive Date: 20240731
  Receipt Date: 20240731
  Transmission Date: 20241017
  Serious: Yes (Other)
  Sender: ASTRAZENECA
  Company Number: 2024A167972

PATIENT
  Sex: Female

DRUGS (1)
  1. CALQUENCE [Suspect]
     Active Substance: ACALABRUTINIB
     Indication: Remission not achieved
     Route: 048
     Dates: start: 20240701

REACTIONS (3)
  - Full blood count abnormal [Not Recovered/Not Resolved]
  - Abdominal pain upper [Unknown]
  - Feeling abnormal [Unknown]
